FAERS Safety Report 15518566 (Version 9)
Quarter: 2020Q2

REPORT INFORMATION
  Report Type: Spontaneous
  Country: US (occurrence: US)
  Receive Date: 20181017
  Receipt Date: 20200407
  Transmission Date: 20200713
  Serious: Yes (Hospitalization)
  Sender: FDA-Public Use
  Company Number: US-ACTELION-A-NJ2018-180316

PATIENT
  Age: 58 Year
  Sex: Female
  Weight: 93.42 kg

DRUGS (7)
  1. AMBRISENTAN [Concomitant]
     Active Substance: AMBRISENTAN
     Dosage: UNK
  2. LETAIRIS [Concomitant]
     Active Substance: AMBRISENTAN
  3. UPTRAVI [Suspect]
     Active Substance: SELEXIPAG
     Indication: PULMONARY ARTERIAL HYPERTENSION
     Dosage: 1600 MCG, BID
     Route: 048
  4. UPTRAVI [Suspect]
     Active Substance: SELEXIPAG
     Dosage: 200 MCG, BID
     Route: 048
  5. SIMPONI [Concomitant]
     Active Substance: GOLIMUMAB
     Dosage: UNK
     Dates: start: 20181005
  6. UPTRAVI [Suspect]
     Active Substance: SELEXIPAG
     Dosage: 200 MCG, BID
     Route: 048
     Dates: end: 201809
  7. UPTRAVI [Suspect]
     Active Substance: SELEXIPAG
     Dosage: 400 MCG, BID
     Route: 048

REACTIONS (22)
  - Influenza like illness [Unknown]
  - Back pain [Unknown]
  - Pulmonary congestion [Unknown]
  - Ear pain [Unknown]
  - Cough [Unknown]
  - Chest pain [Unknown]
  - Blood pressure increased [Unknown]
  - Pain [Unknown]
  - Pyrexia [Unknown]
  - Dyspnoea [Unknown]
  - Abdominal discomfort [Unknown]
  - Pain in extremity [Unknown]
  - Headache [Unknown]
  - Epistaxis [Unknown]
  - Pulmonary oedema [Unknown]
  - Malaise [Unknown]
  - Fluid retention [Unknown]
  - Drug ineffective [Unknown]
  - Heart rate increased [Unknown]
  - Sinus pain [Unknown]
  - Abdominal pain upper [Unknown]
  - Product dose omission [Unknown]

NARRATIVE: CASE EVENT DATE: 20181006
